FAERS Safety Report 8451045-6 (Version None)
Quarter: 2012Q2

REPORT INFORMATION
  Report Type: 
  Country: None (occurrence: None)
  Receive Date: 20120620
  Receipt Date: 20120611
  Transmission Date: 20120825
  Serious: Yes (Hospitalization)
  Sender: FDA-Public Use
  Company Number: BR-ASTRAZENECA-2012SE39640

PATIENT
  Age: 61 Year
  Sex: Male
  Weight: 60 kg

DRUGS (5)
  1. CRESTOR [Suspect]
     Indication: LOW DENSITY LIPOPROTEIN INCREASED
     Route: 048
     Dates: start: 20060101, end: 20100101
  2. CRESTOR [Suspect]
     Route: 048
     Dates: start: 20120201
  3. CRESTOR [Suspect]
     Route: 048
     Dates: start: 20110101, end: 20120201
  4. BRILINTA [Suspect]
     Indication: ANGINA PECTORIS
     Route: 048
     Dates: start: 20120301
  5. CRESTOR [Suspect]
     Route: 048
     Dates: start: 20100101, end: 20110101

REACTIONS (4)
  - DRUG INEFFECTIVE [None]
  - ANGINA PECTORIS [None]
  - LOW DENSITY LIPOPROTEIN INCREASED [None]
  - INTENTIONAL DRUG MISUSE [None]
